FAERS Safety Report 17662054 (Version 5)
Quarter: 2025Q1

REPORT INFORMATION
  Report Type: Spontaneous
  Country: AU (occurrence: AU)
  Receive Date: 20200413
  Receipt Date: 20250321
  Transmission Date: 20250409
  Serious: Yes (Other)
  Sender: SANOFI AVENTIS
  Company Number: AU-SAKK-2020SA071931AA

PATIENT
  Age: 42 Year
  Sex: Female

DRUGS (51)
  1. INSULIN ASPART [Suspect]
     Active Substance: INSULIN ASPART
     Indication: Diabetes mellitus
     Route: 065
  2. INSULIN ASPART [Suspect]
     Active Substance: INSULIN ASPART
     Indication: Diabetes mellitus
  3. APIDRA [Suspect]
     Active Substance: INSULIN GLULISINE
     Indication: Diabetes mellitus
     Dosage: 30 DF, QD
     Route: 058
     Dates: start: 2010
  4. ENOXAPARIN SODIUM [Suspect]
     Active Substance: ENOXAPARIN SODIUM
     Indication: Product used for unknown indication
     Route: 065
     Dates: start: 20170630, end: 20170705
  5. FINGOLIMOD [Suspect]
     Active Substance: FINGOLIMOD
     Indication: Multiple sclerosis
     Dosage: 500 UG, QD
     Route: 048
     Dates: start: 20131204, end: 20140210
  6. FINGOLIMOD [Suspect]
     Active Substance: FINGOLIMOD
     Indication: Multiple sclerosis
     Dosage: 500 MICROGRAM; DOSE FORM: CAPSULE, HARD; INTERVAL: 1 DAY
     Route: 048
     Dates: start: 20131204, end: 20140210
  7. ACETAMINOPHEN [Suspect]
     Active Substance: ACETAMINOPHEN
     Indication: Product used for unknown indication
     Dates: start: 20170630, end: 20170706
  8. FENTANYL [Suspect]
     Active Substance: FENTANYL
     Indication: Product used for unknown indication
     Dates: start: 20170630, end: 20170630
  9. LORATADINE [Suspect]
     Active Substance: LORATADINE
     Indication: Flushing
     Dosage: 2 DF, QD
     Route: 048
     Dates: start: 20140401, end: 20140401
  10. OXYCODONE [Suspect]
     Active Substance: OXYCODONE
     Indication: Product used for unknown indication
     Route: 065
     Dates: start: 20170630, end: 20170630
  11. RAMIPRIL [Suspect]
     Active Substance: RAMIPRIL
     Indication: Hypertension
     Dosage: 2.5 MG, QD
     Route: 048
     Dates: start: 2011
  12. DICLOFENAC SODIUM [Suspect]
     Active Substance: DICLOFENAC SODIUM
     Indication: Product used for unknown indication
  13. TRAMADOL HYDROCHLORIDE [Suspect]
     Active Substance: TRAMADOL HYDROCHLORIDE
     Indication: Product used for unknown indication
     Dates: start: 20170630, end: 20170705
  14. ASPIRIN [Suspect]
     Active Substance: ASPIRIN
     Indication: Product used for unknown indication
     Route: 065
  15. ASPIRIN [Suspect]
     Active Substance: ASPIRIN
     Indication: Flushing
     Route: 048
     Dates: start: 20140321, end: 20140821
  16. DIAZEPAM [Suspect]
     Active Substance: DIAZEPAM
     Indication: Anxiety
     Route: 048
     Dates: start: 2011
  17. AMOXIL [Suspect]
     Active Substance: AMOXICILLIN
     Indication: Lower respiratory tract infection
     Dosage: 750.000MG
     Route: 048
     Dates: start: 20131204, end: 20131211
  18. DULOXETINE HYDROCHLORIDE [Suspect]
     Active Substance: DULOXETINE HYDROCHLORIDE
     Indication: Depression
     Dosage: 60 MG, QD
     Dates: start: 20131206, end: 20150821
  19. CEFAZOLIN [Suspect]
     Active Substance: CEFAZOLIN
     Indication: Product used for unknown indication
     Route: 065
     Dates: start: 20170630, end: 20170702
  20. OXYCODONE HYDROCHLORIDE [Suspect]
     Active Substance: OXYCODONE HYDROCHLORIDE
     Indication: Product used for unknown indication
     Route: 065
  21. OXYCODONE HYDROCHLORIDE [Suspect]
     Active Substance: OXYCODONE HYDROCHLORIDE
     Dates: start: 20170630, end: 20170630
  22. FISH OIL [Suspect]
     Active Substance: FISH OIL
     Indication: Prophylaxis
     Dosage: 3000 MG, QD
     Route: 048
     Dates: start: 2011
  23. FISH OIL [Suspect]
     Active Substance: FISH OIL
     Indication: Prophylaxis
     Dosage: 3000 MILLIGRAM; INTERVAL: 1 DAY;
     Route: 048
     Dates: start: 2011
  24. MORPHINE SULFATE [Suspect]
     Active Substance: MORPHINE SULFATE
     Indication: Product used for unknown indication
     Route: 065
  25. ACETAMINOPHEN\CODEINE PHOSPHATE [Suspect]
     Active Substance: ACETAMINOPHEN\CODEINE PHOSPHATE
     Indication: Headache
     Route: 048
     Dates: start: 2011
  26. ACETAMINOPHEN\CODEINE PHOSPHATE [Suspect]
     Active Substance: ACETAMINOPHEN\CODEINE PHOSPHATE
     Indication: Migraine
  27. ACETAMINOPHEN\CODEINE PHOSPHATE [Suspect]
     Active Substance: ACETAMINOPHEN\CODEINE PHOSPHATE
     Indication: Pain
  28. PROPRANOLOL HYDROCHLORIDE [Suspect]
     Active Substance: PROPRANOLOL HYDROCHLORIDE
     Indication: Hyperhidrosis
     Dates: start: 20160406, end: 20160419
  29. CYANOCOBALAMIN [Suspect]
     Active Substance: CYANOCOBALAMIN
     Indication: Prophylaxis
     Dosage: 1000 MG, QD
     Route: 048
     Dates: start: 2011
  30. CHOLECALCIFEROL [Suspect]
     Active Substance: CHOLECALCIFEROL
     Indication: Vitamin D decreased
     Dosage: 1000 DF, QD
     Route: 048
     Dates: start: 2011
  31. PREGABALIN [Suspect]
     Active Substance: PREGABALIN
     Indication: Neuralgia
     Dosage: 600 MG, QD
     Route: 048
     Dates: start: 2011
  32. SERTRALINE HYDROCHLORIDE [Suspect]
     Active Substance: SERTRALINE HYDROCHLORIDE
     Indication: Depression
     Dosage: 50 MG, QD
     Route: 048
     Dates: start: 2012, end: 20131205
  33. AMOXICILLIN SODIUM [Suspect]
     Active Substance: AMOXICILLIN SODIUM
     Indication: Product used for unknown indication
     Route: 065
  34. UBIDECARENONE [Suspect]
     Active Substance: UBIDECARENONE
     Route: 065
  35. ESTRADIOL VALERATE [Suspect]
     Active Substance: ESTRADIOL VALERATE
     Indication: Product used for unknown indication
     Dates: start: 20170630, end: 20170630
  36. GLUCAGON [Suspect]
     Active Substance: GLUCAGON
     Indication: Diabetes mellitus
     Route: 065
  37. GLUCAGON [Suspect]
     Active Substance: GLUCAGON
     Dates: start: 201409
  38. GLUCAGON [Suspect]
     Active Substance: GLUCAGON
     Dates: start: 201409
  39. LEVEMIR [Suspect]
     Active Substance: INSULIN DETEMIR
     Indication: Diabetes mellitus
  40. LEVEMIR [Suspect]
     Active Substance: INSULIN DETEMIR
     Indication: Diabetes mellitus inadequate control
     Dosage: 24 DF, QD
     Route: 058
     Dates: start: 2010
  41. DOCUSATE SODIUM\SENNOSIDE B [Suspect]
     Active Substance: DOCUSATE SODIUM\SENNOSIDE B
     Indication: Product used for unknown indication
     Dates: start: 20150226, end: 20150903
  42. DOCUSATE SODIUM\SENNOSIDE B [Suspect]
     Active Substance: DOCUSATE SODIUM\SENNOSIDE B
     Dates: start: 20150226, end: 20150903
  43. BIOTIN\VITAMIN B COMPLEX [Suspect]
     Active Substance: BIOTIN\VITAMIN B COMPLEX
     Indication: Product used for unknown indication
     Route: 065
  44. TECFIDERA [Suspect]
     Active Substance: DIMETHYL FUMARATE
     Indication: Multiple sclerosis
     Route: 048
     Dates: start: 20140320, end: 20140320
  45. TECFIDERA [Suspect]
     Active Substance: DIMETHYL FUMARATE
     Dosage: 120 MG, QD
     Route: 048
     Dates: start: 20140321, end: 20140328
  46. TECFIDERA [Suspect]
     Active Substance: DIMETHYL FUMARATE
     Dosage: 240 MG, QD
     Route: 048
     Dates: start: 20140329, end: 20140331
  47. TECFIDERA [Suspect]
     Active Substance: DIMETHYL FUMARATE
     Dosage: 120 MG, QD
     Route: 048
     Dates: start: 20140401, end: 20140512
  48. TECFIDERA [Suspect]
     Active Substance: DIMETHYL FUMARATE
     Dosage: 480 MG, QD
     Route: 048
     Dates: start: 20140513
  49. NALOXONE HYDROCHLORIDE\OXYCODONE HYDROCHLORIDE [Suspect]
     Active Substance: NALOXONE HYDROCHLORIDE\OXYCODONE HYDROCHLORIDE
     Indication: Product used for unknown indication
     Dates: start: 20170630, end: 20170702
  50. NALOXONE HYDROCHLORIDE\OXYCODONE HYDROCHLORIDE [Suspect]
     Active Substance: NALOXONE HYDROCHLORIDE\OXYCODONE HYDROCHLORIDE
     Dates: start: 20170630, end: 20170702
  51. KEFLEX [Suspect]
     Active Substance: CEPHALEXIN
     Indication: Pharyngitis
     Dosage: 1500 MG, QD
     Route: 048
     Dates: start: 20140520, end: 20140612

REACTIONS (26)
  - Multiple lentigines syndrome [Unknown]
  - Macular oedema [Recovered/Resolved]
  - Diabetes mellitus inadequate control [Unknown]
  - Diabetic retinopathy [Recovered/Resolved]
  - Vision blurred [Unknown]
  - Eye haemorrhage [Recovered/Resolved]
  - Cystoid macular oedema [Recovered/Resolved]
  - Eye pain [Unknown]
  - Diabetic retinal oedema [Unknown]
  - Episcleritis [Recovered/Resolved]
  - Cataract subcapsular [Unknown]
  - Dizziness postural [Unknown]
  - Headache [Unknown]
  - Paraesthesia [Recovered/Resolved]
  - Psoriasis [Unknown]
  - Sensory disturbance [Unknown]
  - Skin burning sensation [Unknown]
  - Tinea infection [Unknown]
  - Alanine aminotransferase increased [Recovered/Resolved]
  - Dizziness [Unknown]
  - Fatigue [Unknown]
  - Gamma-glutamyltransferase increased [Unknown]
  - Lymphocyte count decreased [Unknown]
  - Burning sensation [Recovered/Resolved]
  - Thermal burn [Unknown]
  - Tinea pedis [Unknown]

NARRATIVE: CASE EVENT DATE: 20131204
